FAERS Safety Report 18615553 (Version 1)
Quarter: 2020Q4

REPORT INFORMATION
  Report Type: Spontaneous
  Country: US (occurrence: US)
  Receive Date: 20201215
  Receipt Date: 20201215
  Transmission Date: 20210114
  Serious: No
  Sender: FDA-Public Use
  Company Number: US-LUPIN PHARMACEUTICALS INC.-2020-10107

PATIENT
  Age: 59 Year

DRUGS (5)
  1. DESLORATADINE. [Suspect]
     Active Substance: DESLORATADINE
     Indication: AQUAGENIC PRURITUS
     Dosage: 60 MILLIGRAM, QD
     Route: 065
  2. GABAPENTIN. [Suspect]
     Active Substance: GABAPENTIN
     Indication: AQUAGENIC PRURITUS
     Dosage: UNK
     Route: 065
  3. NALTREXONE [Suspect]
     Active Substance: NALTREXONE
     Indication: AQUAGENIC PRURITUS
     Dosage: 50 MILLIGRAM, UNK
     Route: 065
  4. BUTORPHANOL [Concomitant]
     Active Substance: BUTORPHANOL
     Indication: AQUAGENIC PRURITUS
     Dosage: 10 MILLIGRAM PER MILLILITRE, PRN (UPTO 4 HRS)
     Route: 045
  5. HYDROXYZINE [Suspect]
     Active Substance: HYDROXYZINE HYDROCHLORIDE
     Indication: AQUAGENIC PRURITUS
     Dosage: 20 MILLIGRAM, QD
     Route: 065

REACTIONS (1)
  - Treatment failure [Unknown]
